FAERS Safety Report 10129348 (Version 1)
Quarter: 2014Q2

REPORT INFORMATION
  Report Type: Spontaneous
  Country: US (occurrence: US)
  Receive Date: 20140428
  Receipt Date: 20140428
  Transmission Date: 20141212
  Serious: No
  Sender: FDA-Public Use
  Company Number: US-ABBVIE-14P-163-1205287-00

PATIENT
  Sex: Male
  Weight: 172.52 kg

DRUGS (4)
  1. ANDROGEL [Suspect]
     Indication: BLOOD TESTOSTERONE DECREASED
     Route: 061
     Dates: start: 20140115, end: 20140221
  2. BYSTOLIC [Concomitant]
     Indication: HYPERTENSION
  3. HYDROCHLOROTHIAZIDE [Concomitant]
     Indication: HYPERTENSION
  4. ZOLOFT [Concomitant]
     Indication: DEPRESSION

REACTIONS (2)
  - Vision blurred [Unknown]
  - Drug ineffective [Unknown]
